FAERS Safety Report 8496457-X (Version None)
Quarter: 2012Q3

REPORT INFORMATION
  Report Type: 
  Country: None (occurrence: None)
  Receive Date: 20120709
  Receipt Date: 20120629
  Transmission Date: 20120928
  Serious: Yes (Other)
  Sender: FDA-Public Use
  Company Number: US-ABBOTT-12P-163-0928767-00

PATIENT
  Sex: Male
  Weight: 90.8 kg

DRUGS (9)
  1. HUMIRA [Suspect]
     Indication: PSORIASIS
     Dates: start: 20110401
  2. LIPITOR [Concomitant]
     Indication: BLOOD CHOLESTEROL INCREASED
  3. DYCLOFENAC [Concomitant]
     Indication: BACK PAIN
  4. VOLTAREN [Concomitant]
     Indication: ARTHRALGIA
     Route: 048
  5. RANITADINE [Concomitant]
     Indication: ABDOMINAL DISCOMFORT
  6. HYDROCODONE [Concomitant]
     Indication: PAIN
     Dosage: PRN
  7. HUMIRA [Suspect]
  8. TRAMADOL HCL [Concomitant]
     Indication: ARTHRALGIA
     Dosage: 4-5 TIMES A DAY PRN
     Route: 048
  9. LYRICA [Concomitant]
     Indication: NEURALGIA
     Route: 048

REACTIONS (2)
  - LIGAMENT RUPTURE [None]
  - ARTHRALGIA [None]
